FAERS Safety Report 9693928 (Version 4)
Quarter: 2014Q1

REPORT INFORMATION
  Report Type: Spontaneous
  Country: JP (occurrence: JP)
  Receive Date: 20131118
  Receipt Date: 20140116
  Transmission Date: 20141002
  Serious: Yes (Hospitalization)
  Sender: FDA-Public Use
  Company Number: JP-TAKEDA-2013TUS002311

PATIENT
  Sex: 0

DRUGS (10)
  1. FEBURIC [Suspect]
     Indication: HYPERURICAEMIA
     Dosage: 10 MG, QD
     Route: 048
     Dates: start: 20130829, end: 20130831
  2. LANSOPRAZOLE [Concomitant]
     Indication: GASTROOESOPHAGEAL REFLUX PROPHYLAXIS
     Dosage: 15 MG, QD
     Route: 048
     Dates: start: 20101025
  3. PREDONINE                          /00016201/ [Concomitant]
     Indication: RHEUMATIC DISORDER
     Dosage: 3.0 MG, QD
     Route: 048
     Dates: start: 20050523
  4. METHOTREXATE [Concomitant]
     Indication: RHEUMATIC DISORDER
     Dosage: 8 MG, QD
     Route: 048
     Dates: start: 20100329
  5. PROGRAF [Concomitant]
     Indication: RHEUMATIC DISORDER
     Dosage: 1 MG, QD
     Route: 048
     Dates: start: 20110117
  6. DIOVAN [Concomitant]
     Indication: HYPERTENSION
     Dosage: 80 MG, QD
     Route: 048
     Dates: start: 20100329
  7. LOCHOL [Concomitant]
     Indication: HYPERLIPIDAEMIA
     Dosage: 30 MG, QD
     Route: 048
     Dates: start: 20090518
  8. EDIROL [Concomitant]
     Indication: OSTEOPOROSIS
     Dosage: 0.75 MG, QD
     Route: 048
     Dates: start: 20120419
  9. MELOXICAM [Concomitant]
     Indication: RHEUMATIC DISORDER
     Dosage: 10 MG, QD
     Route: 048
     Dates: start: 20050526
  10. FERROMIA                           /00023516/ [Concomitant]
     Indication: ANAEMIA
     Dosage: 50 MG, QD
     Route: 048
     Dates: start: 20130704

REACTIONS (1)
  - Generalised erythema [Not Recovered/Not Resolved]
